FAERS Safety Report 6055028-5 (Version None)
Quarter: 2009Q1

REPORT INFORMATION
  Report Type: 
  Country: None (occurrence: None)
  Receive Date: 20090122
  Receipt Date: 20090112
  Transmission Date: 20090719
  Serious: Yes (Other)
  Sender: FDA-Public Use
  Company Number: GXKR2009JP00664

PATIENT
  Age: 80 Year
  Sex: Female

DRUGS (1)
  1. PRAVASTATIN   (PRAVASTATIN SODIUM)          UNKNOWN [Suspect]
     Indication: HYPERCHOLESTEROLAEMIA

REACTIONS (8)
  - ACANTHOSIS [None]
  - DERMATITIS PSORIASIFORM [None]
  - DRUG ERUPTION [None]
  - ERYTHEMA [None]
  - HYPERKERATOSIS [None]
  - LYMPHOCYTE STIMULATION TEST POSITIVE [None]
  - PYREXIA [None]
  - SKIN EXFOLIATION [None]
